FAERS Safety Report 4270767-4 (Version None)
Quarter: 2004Q1

REPORT INFORMATION
  Report Type: 
  Country: None (occurrence: None)
  Receive Date: 20040114
  Receipt Date: 20031219
  Transmission Date: 20041129
  Serious: Yes (Life-Threatening, Hospitalization, Disabling)
  Sender: FDA-Public Use
  Company Number: US-ROCHE-354735

PATIENT
  Age: 87 Year
  Sex: Female
  Weight: 72.6 kg

DRUGS (1)
  1. XELODA [Suspect]
     Indication: DRUG USE FOR UNKNOWN INDICATION
     Dosage: ADMINISTERED AS AN INTERMITTENT THERAPY OF 2 WEEKS TREATMENT FOLLOWED BY 1 WEEKS REST IN A CYCLE OF+
     Route: 048

REACTIONS (9)
  - DEHYDRATION [None]
  - DERMATITIS EXFOLIATIVE [None]
  - DIARRHOEA [None]
  - EYE IRRITATION [None]
  - HAEMATEMESIS [None]
  - KERATOCONJUNCTIVITIS SICCA [None]
  - MUSCULAR WEAKNESS [None]
  - NAUSEA [None]
  - STOMATITIS [None]
